FAERS Safety Report 13483987 (Version 1)
Quarter: 2017Q2

REPORT INFORMATION
  Report Type: Spontaneous
  Country: US (occurrence: US)
  Receive Date: 20170425
  Receipt Date: 20170425
  Transmission Date: 20170830
  Serious: Yes (Other)
  Sender: FDA-Public Use
  Company Number: None

PATIENT
  Sex: Female
  Weight: 74.25 kg

DRUGS (12)
  1. AMLODIPINE [Concomitant]
     Active Substance: AMLODIPINE BESYLATE
  2. TOPIRAMATE. [Concomitant]
     Active Substance: TOPIRAMATE
  3. ACYCLOVIR. [Concomitant]
     Active Substance: ACYCLOVIR
  4. METOPROLOL. [Concomitant]
     Active Substance: METOPROLOL
  5. GABAPENTIN. [Concomitant]
     Active Substance: GABAPENTIN
  6. HAIR-NAIL-SKIN VITAMIN [Concomitant]
  7. AMBIEN [Concomitant]
     Active Substance: ZOLPIDEM TARTRATE
  8. SERTRALINE [Concomitant]
     Active Substance: SERTRALINE HYDROCHLORIDE
  9. ASMANEX [Suspect]
     Active Substance: MOMETASONE FUROATE
     Indication: COUGH
     Dosage: ?          QUANTITY:30 PUFF(S);?
     Route: 055
  10. DICYCLOMINE [Concomitant]
     Active Substance: DICYCLOMINE HYDROCHLORIDE
  11. PANTOPRAZOLE [Concomitant]
     Active Substance: PANTOPRAZOLE
  12. TIMOLOL MALEATE OPHTHALMIC SOLUTION [Concomitant]
     Active Substance: TIMOLOL MALEATE

REACTIONS (3)
  - Condition aggravated [None]
  - Gingival disorder [None]
  - Tooth disorder [None]
